FAERS Safety Report 6283526-8 (Version None)
Quarter: 2009Q3

REPORT INFORMATION
  Report Type: 
  Country: None (occurrence: None)
  Receive Date: 20090724
  Receipt Date: 20090415
  Transmission Date: 20100115
  Serious: No
  Sender: FDA-Public Use
  Company Number: US-ALEXION-A200900325

PATIENT
  Sex: Male

DRUGS (19)
  1. SOLIRIS [Suspect]
     Indication: PAROXYSMAL NOCTURNAL HAEMOGLOBINURIA
     Dosage: 600 MG, QW
     Route: 042
     Dates: start: 20070925, end: 20071016
  2. SOLIRIS [Suspect]
     Dosage: 900 MG, Q2W
     Route: 042
     Dates: start: 20071023
  3. COUMADIN [Concomitant]
     Dosage: 2.5 MG, QD, AS DIRECTED BY MD
     Route: 048
  4. COUMADIN [Concomitant]
     Dosage: 5 MG, QD, AS DIRECTED BY MD
     Route: 048
  5. AUGMENTIN '125' [Concomitant]
     Indication: INFECTION PROPHYLAXIS
     Dosage: 875-125 MG, BID
     Route: 048
     Dates: start: 20090214, end: 20090201
  6. RELPAX [Concomitant]
     Indication: HEADACHE
     Dosage: 40 MG, PRN
     Route: 048
  7. DURADRIN [Concomitant]
     Indication: HEADACHE
     Dosage: 1 UNK, PRN
     Route: 048
  8. TOPAMAX [Concomitant]
     Dosage: 100 MG, BID
     Route: 048
  9. IMITREX                            /01044801/ [Concomitant]
     Indication: MIGRAINE
     Dosage: 100 MG, PRN
     Route: 048
  10. OMEPRAZOLE [Concomitant]
     Dosage: 20 MG, QD
     Route: 048
  11. FERROUS SULFATE TAB [Concomitant]
     Dosage: 325 MG, BID
     Route: 048
  12. VITAMINS WITH MINERALS [Concomitant]
     Dosage: 1 UNK, QD
     Route: 048
  13. IRON [Concomitant]
     Dosage: 1 UNK, QD
     Route: 048
  14. VITAMIN E                          /00110501/ [Concomitant]
     Dosage: 400 UT, QD
     Route: 048
  15. OMEGA-3 FATTY ACIDS [Concomitant]
     Dosage: 300 MG, QD
     Route: 048
  16. ATIVAN [Concomitant]
     Dosage: 1 MG, UNK
     Route: 048
  17. TIMOLOL MALEATE [Concomitant]
     Dosage: 10 MG, QD
     Route: 048
  18. FIORICET [Concomitant]
     Dosage: 1 UNK, PRN, QID
     Route: 048
  19. LOVENOX [Concomitant]
     Dosage: 120 MG, QD
     Dates: start: 20080402

REACTIONS (1)
  - GINGIVAL DISORDER [None]
